FAERS Safety Report 6326161-5 (Version None)
Quarter: 2009Q3

REPORT INFORMATION
  Report Type: 
  Country: None (occurrence: None)
  Receive Date: 20090824
  Receipt Date: 20090611
  Transmission Date: 20100115
  Serious: Yes (Other)
  Sender: FDA-Public Use
  Company Number: FI-PFIZER INC-2009225682

PATIENT
  Age: 57 Year

DRUGS (3)
  1. ZELDOX [Suspect]
     Dosage: UNK
     Dates: start: 20080801
  2. SERDOLECT [Concomitant]
     Dosage: UNK
     Route: 048
  3. TEMESTA [Concomitant]
     Dosage: UNK
     Route: 048

REACTIONS (3)
  - DIZZINESS [None]
  - PARKINSONISM [None]
  - SOMNOLENCE [None]
